FAERS Safety Report 10083213 (Version 3)
Quarter: 2014Q2

REPORT INFORMATION
  Report Type: Spontaneous
  Country: CH (occurrence: CH)
  Receive Date: 20140417
  Receipt Date: 20140603
  Transmission Date: 20141212
  Serious: Yes (Hospitalization)
  Sender: FDA-Public Use
  Company Number: CH-BRISTOL-MYERS SQUIBB COMPANY-20621512

PATIENT
  Age: 70 Year
  Sex: Female

DRUGS (1)
  1. ERBITUX SOLN FOR INF [Suspect]
     Indication: ANAL CANCER
     Dosage: DOSE REDUCED TO 250MG/M2 ON 04-APR-2014
     Route: 042
     Dates: start: 20140326

REACTIONS (3)
  - Fall [Unknown]
  - Femoral neck fracture [Unknown]
  - Off label use [Unknown]
